FAERS Safety Report 7312097-X (Version None)
Quarter: 2011Q1

REPORT INFORMATION
  Report Type: 
  Country: None (occurrence: None)
  Receive Date: 20110224
  Receipt Date: 20110216
  Transmission Date: 20110831
  Serious: Yes (Hospitalization, Other)
  Sender: FDA-Public Use
  Company Number: US-ELI_LILLY_AND_COMPANY-US201102004980

PATIENT
  Sex: Female

DRUGS (2)
  1. EFFIENT [Suspect]
  2. ASPIRIN [Concomitant]

REACTIONS (3)
  - HOSPITALISATION [None]
  - SYSTEMIC LUPUS ERYTHEMATOSUS [None]
  - GASTRIC HAEMORRHAGE [None]
